FAERS Safety Report 9012503 (Version 2)
Quarter: 2013Q1

REPORT INFORMATION
  Report Type: Spontaneous
  Country: US (occurrence: US)
  Receive Date: 20130114
  Receipt Date: 20130204
  Transmission Date: 20140127
  Serious: No
  Sender: FDA-Public Use
  Company Number: US-PFIZER INC-2013015607

PATIENT
  Age: 68 Year
  Sex: Female
  Weight: 56.69 kg

DRUGS (7)
  1. PRISTIQ [Suspect]
     Indication: DEPRESSION
     Dosage: 50 MG, DAILY
     Dates: start: 2012
  2. PRISTIQ [Suspect]
     Dosage: 100 MG, DAILY
  3. PRISTIQ [Suspect]
     Dosage: 50 MG, DAILY
  4. PRISTIQ [Suspect]
     Dosage: 25 MG, DAILY
  5. SYNTHROID [Concomitant]
     Indication: THYROID DISORDER
     Dosage: 137 UG, DAILY
  6. TENORMIN [Concomitant]
     Indication: CARDIAC DISORDER
     Dosage: 50 MG, 2X/DAY
  7. PROZAC [Concomitant]
     Dosage: 20 MG, DAILY

REACTIONS (6)
  - Dizziness [Unknown]
  - Vertigo [Unknown]
  - Balance disorder [Unknown]
  - Nausea [Unknown]
  - Diarrhoea [Unknown]
  - Gastric disorder [Unknown]
